FAERS Safety Report 7823129-4 (Version None)
Quarter: 2011Q4

REPORT INFORMATION
  Report Type: 
  Country: None (occurrence: None)
  Receive Date: 20111019
  Receipt Date: 20111010
  Transmission Date: 20120403
  Serious: Yes (Hospitalization)
  Sender: FDA-Public Use
  Company Number: US-BIOGENIDEC-2011BI038791

PATIENT
  Sex: Female

DRUGS (1)
  1. AVONEX [Suspect]
     Indication: MULTIPLE SCLEROSIS
     Route: 030
     Dates: start: 20110909

REACTIONS (6)
  - URINARY TRACT INFECTION [None]
  - DIARRHOEA [None]
  - FALL [None]
  - VOMITING [None]
  - ABASIA [None]
  - HYPERTENSION [None]
